FAERS Safety Report 7290704-8 (Version None)
Quarter: 2011Q1

REPORT INFORMATION
  Report Type: 
  Country: None (occurrence: None)
  Receive Date: 20110214
  Receipt Date: 20110208
  Transmission Date: 20110831
  Serious: No
  Sender: FDA-Public Use
  Company Number: AU-JNJFOC-20110200423

PATIENT
  Sex: Female
  Weight: 83.7 kg

DRUGS (3)
  1. DURAGESIC-100 [Suspect]
     Indication: PAIN
     Dosage: 75 UG/HR PLUS 12.5 UG/HR = 87.5 UG/HR PATCHES
     Route: 062
  2. DURAGESIC-100 [Suspect]
     Indication: NEURALGIA
     Dosage: 75 UG/HR PLUS 12.5 UG/HR = 87.5 UG/HR PATCHES
     Route: 062
  3. DURAGESIC-100 [Suspect]
     Indication: RHEUMATOID ARTHRITIS
     Dosage: 75 UG/HR PLUS 12.5 UG/HR = 87.5 UG/HR PATCHES
     Route: 062

REACTIONS (5)
  - DRUG ADMINISTERED AT INAPPROPRIATE SITE [None]
  - PRODUCT QUALITY ISSUE [None]
  - OBESITY [None]
  - INADEQUATE ANALGESIA [None]
  - HYPERHIDROSIS [None]
